FAERS Safety Report 4728271-2 (Version None)
Quarter: 2005Q3

REPORT INFORMATION
  Report Type: 
  Country: None (occurrence: None)
  Receive Date: 20050727
  Receipt Date: 20050715
  Transmission Date: 20060218
  Serious: Yes (Hospitalization)
  Sender: FDA-Public Use
  Company Number: DEU-2005-0001396

PATIENT
  Age: 39 Year
  Sex: Male

DRUGS (2)
  1. OXYCODONE HCL [Suspect]
     Indication: PAIN
     Dosage: ORAL
     Route: 048
     Dates: start: 20050425
  2. MELPERONE HYDROCHLORIDE (MELPERONE HYDROCHLORIDE) [Concomitant]

REACTIONS (6)
  - BACTERIURIA [None]
  - CHROMATURIA [None]
  - HAEMATURIA [None]
  - NEPHROLITHIASIS [None]
  - PROTEIN URINE [None]
  - RENAL INJURY [None]
